FAERS Safety Report 8857177 (Version 1)
Quarter: 2012Q4

REPORT INFORMATION
  Report Type: 
  Country: GB (occurrence: GB)
  Receive Date: 20121024
  Receipt Date: 20121024
  Transmission Date: 20130627
  Serious: Yes (Hospitalization)
  Sender: FDA-Public Use
  Company Number: GB-WATSON-2012-17695

PATIENT
  Age: 71 Year
  Sex: Female
  Weight: 46.71 kg

DRUGS (9)
  1. SERTRALINE HYDROCHLORIDE (UNKNOWN) [Suspect]
     Indication: DEPRESSION
     Dosage: 50 mg, daily
     Route: 048
     Dates: start: 20120830, end: 20120926
  2. SERTRALINE HYDROCHLORIDE (UNKNOWN) [Suspect]
     Dosage: 100 mg, daily
     Route: 048
     Dates: start: 20120926, end: 20120928
  3. CANDESARTAN CILEXETIL [Concomitant]
     Indication: PRODUCT USED FOR UNKNOWN INDICATION
     Dosage: 8 mg, unknown Withheld along with the sertraline
     Route: 065
  4. LACRI-LUBE [Concomitant]
     Indication: PRODUCT USED FOR UNKNOWN INDICATION
     Dosage: UNK
     Route: 065
  5. BECLOMETASONE [Concomitant]
     Indication: PRODUCT USED FOR UNKNOWN INDICATION
     Dosage: UNK
     Route: 045
  6. SODIUM HYALURONATE [Concomitant]
     Indication: PRODUCT USED FOR UNKNOWN INDICATION
     Dosage: 0.18 %, unknown
     Route: 065
  7. AMITRIPTYLINE [Concomitant]
     Indication: PRODUCT USED FOR UNKNOWN INDICATION
     Dosage: 10 mg, daily,At night. Withheld along with the sertraline
     Route: 065
  8. DOXYCYCLINE HYCLATE [Concomitant]
     Indication: PRODUCT USED FOR UNKNOWN INDICATION
     Dosage: 100 mg, unknown
     Route: 065
  9. DIAZEPAM [Concomitant]
     Indication: PRODUCT USED FOR UNKNOWN INDICATION
     Dosage: 5 mg, unknown
     Route: 065

REACTIONS (5)
  - Confusional state [Unknown]
  - Hallucinations, mixed [Unknown]
  - Agitation [Unknown]
  - Hyponatraemia [Unknown]
  - Miosis [Unknown]
